FAERS Safety Report 5013313-X (Version None)
Quarter: 2006Q2

REPORT INFORMATION
  Report Type: 
  Country: None (occurrence: None)
  Receive Date: 20060530
  Receipt Date: 20060410
  Transmission Date: 20061013
  Serious: No
  Sender: FDA-Public Use
  Company Number: US-GLAXOSMITHKLINE-A0601143A

PATIENT
  Age: 74 Year
  Sex: Female

DRUGS (7)
  1. WELLBUTRIN XL [Suspect]
     Indication: DEPRESSION
     Dosage: 150MG PER DAY
     Route: 048
     Dates: start: 20060407, end: 20060407
  2. REMERON [Concomitant]
  3. AMBIEN [Concomitant]
  4. CLONAZEPAM [Concomitant]
  5. NEURONTIN [Concomitant]
  6. PERCOCET [Concomitant]
  7. VITAMINS [Concomitant]

REACTIONS (2)
  - DRY MOUTH [None]
  - INSOMNIA [None]
